FAERS Safety Report 19959320 (Version 1)
Quarter: 2021Q4

REPORT INFORMATION
  Report Type: Spontaneous
  Country: DE (occurrence: DE)
  Receive Date: 20211015
  Receipt Date: 20211015
  Transmission Date: 20220303
  Serious: Yes (Life-Threatening, Other)
  Sender: FDA-Public Use
  Company Number: DE-ANIPHARMA-2021-DE-000228

PATIENT
  Sex: Male
  Weight: 90 kg

DRUGS (12)
  1. CANDESARTAN CILEXETIL [Suspect]
     Active Substance: CANDESARTAN CILEXETIL
     Indication: Product used for unknown indication
     Dosage: 56 DF DAILY
     Route: 048
     Dates: start: 20210901, end: 20210901
  2. BUCETIN\CAFFEINE\PHENACETIN\PROPYPHENAZONE\SULFAMIDOPYRINE\THIAMINE [Suspect]
     Active Substance: BUCETIN\CAFFEINE\PHENACETIN\PROPYPHENAZONE\SULFAMIDOPYRINE\THIAMINE
     Dosage: 20 DF DAILY
     Route: 048
     Dates: start: 20210901, end: 20210901
  3. PREDNISOLONE [Suspect]
     Active Substance: PREDNISOLONE
     Dosage: 80 DF DAILY
     Route: 048
     Dates: start: 20210901, end: 20210901
  4. HYDROCHLOROTHIAZIDE [Suspect]
     Active Substance: HYDROCHLOROTHIAZIDE
     Dosage: 90 DF DAILY
     Route: 048
     Dates: start: 20210901, end: 20210901
  5. DAPAGLIFLOZIN [Suspect]
     Active Substance: DAPAGLIFLOZIN
     Dosage: 28 DF DAILY
     Route: 048
     Dates: start: 20210901, end: 20210901
  6. METFORMIN HYDROCHLORIDE\SAXAGLIPTIN [Suspect]
     Active Substance: METFORMIN HYDROCHLORIDE\SAXAGLIPTIN
     Dosage: 7 DF DAILY
     Route: 048
     Dates: start: 20210901, end: 20210901
  7. ASPIRIN [Suspect]
     Active Substance: ASPIRIN
     Dosage: 160 DF DAILY
     Route: 048
     Dates: start: 20210901, end: 20210901
  8. ACETAMINOPHEN [Suspect]
     Active Substance: ACETAMINOPHEN
     Route: 065
     Dates: start: 20210901, end: 20210901
  9. FOLIC ACID [Suspect]
     Active Substance: FOLIC ACID
     Dosage: 110 DF DAILY
     Route: 048
     Dates: start: 20210901, end: 20210901
  10. SIMVASTATIN [Suspect]
     Active Substance: SIMVASTATIN
     Dosage: 175 DF DAILY
     Route: 048
     Dates: start: 20210901, end: 20210901
  11. PANTOZOL [Suspect]
     Active Substance: PANTOPRAZOLE SODIUM
     Route: 048
     Dates: start: 20210901, end: 20210901
  12. AMLODIPINE BESYLATE [Suspect]
     Active Substance: AMLODIPINE BESYLATE
     Dosage: 25 DF DAILY
     Route: 048
     Dates: start: 20210901, end: 20210901

REACTIONS (8)
  - Suicide attempt [Recovered/Resolved]
  - Tachycardia [Recovered/Resolved]
  - Blood glucose increased [Recovered/Resolved]
  - Somnolence [Recovered/Resolved]
  - Heart rate increased [Recovered/Resolved]
  - Vomiting [Recovered/Resolved]
  - Intentional self-injury [Recovered/Resolved]
  - Intentional overdose [Unknown]

NARRATIVE: CASE EVENT DATE: 20210901
